FAERS Safety Report 7680886-8 (Version None)
Quarter: 2011Q3

REPORT INFORMATION
  Report Type: 
  Country: None (occurrence: None)
  Receive Date: 20110812
  Receipt Date: 20110808
  Transmission Date: 20111222
  Serious: Yes (Death, Hospitalization)
  Sender: FDA-Public Use
  Company Number: GB-PFIZER INC-2011181951

PATIENT
  Age: 84 Year
  Sex: Female

DRUGS (7)
  1. ISTIN [Suspect]
     Indication: HYPERTENSION
     Dosage: UNK
     Route: 048
     Dates: end: 20030225
  2. ATENOLOL [Concomitant]
     Dosage: UNK
     Route: 048
  3. GLICLAZIDE [Concomitant]
     Dosage: UNK
     Dates: start: 20030303
  4. SYNACTHEN DEPOT [Concomitant]
     Dosage: UNK
  5. LEVOTHYROXINE SODIUM [Concomitant]
     Dosage: UNK
     Route: 048
  6. CO-AMILOFRUSE [Concomitant]
     Dosage: UNK
     Dates: end: 20030224
  7. CIPROFLOXACIN [Concomitant]
     Dosage: UNK
     Route: 042
     Dates: start: 20030225

REACTIONS (7)
  - DEATH [None]
  - PNEUMONIA [None]
  - INFECTION [None]
  - RESPIRATORY ARREST [None]
  - BLOOD UREA INCREASED [None]
  - PLATELET COUNT DECREASED [None]
  - SEPSIS [None]
